FAERS Safety Report 20977436 (Version 2)
Quarter: 2022Q3

REPORT INFORMATION
  Report Type: Spontaneous
  Country: CA (occurrence: CA)
  Receive Date: 20220617
  Receipt Date: 20220728
  Transmission Date: 20221027
  Serious: No
  Sender: FDA-Public Use
  Company Number: CA-CELLTRION INC.-2022CA009431

PATIENT

DRUGS (4)
  1. INFLECTRA [Suspect]
     Active Substance: INFLIXIMAB-DYYB
     Indication: Psoriasis
     Dosage: 5 MG/KG WEEKS 0,2,6 THEN EVERY 8 WEEKS
     Route: 042
     Dates: start: 20220602
  2. INFLECTRA [Suspect]
     Active Substance: INFLIXIMAB-DYYB
     Dosage: 500 MG (PATIENT IS SUPPOSED TO RECEIVE 5 MG/KG)
     Route: 042
     Dates: start: 20220616
  3. METHOTREXATE [Concomitant]
     Active Substance: METHOTREXATE
     Dosage: 1 DF
     Route: 065
  4. HYDROCORTISONE [Concomitant]
     Active Substance: HYDROCORTISONE
     Indication: Premedication
     Dosage: 100 MG (TO BE GIVEN 15 TO 30 MINUTES PRIOR TO THE INFUSION)
     Route: 042
     Dates: start: 20220616

REACTIONS (13)
  - Off label use [Unknown]
  - Intentional product use issue [Unknown]
  - Incorrect dose administered [Unknown]
  - Headache [Recovered/Resolved]
  - Rash erythematous [Unknown]
  - Cold sweat [Unknown]
  - Migraine [Unknown]
  - Skin plaque [Unknown]
  - Pruritus [Unknown]
  - Chills [Unknown]
  - Pain of skin [Unknown]
  - Dermal cyst [Unknown]
  - Psoriasis [Not Recovered/Not Resolved]

NARRATIVE: CASE EVENT DATE: 20220601
